FAERS Safety Report 5919942-0 (Version None)
Quarter: 2008Q3

REPORT INFORMATION
  Report Type: 
  Country: None (occurrence: None)
  Receive Date: 20080909
  Receipt Date: 20070831
  Transmission Date: 20090109
  Serious: Yes (Hospitalization)
  Sender: FDA-Public Use
  Company Number: 163-20785-07061669

PATIENT
  Age: 78 Year
  Sex: Female

DRUGS (6)
  1. THALOMID [Suspect]
     Indication: MULTIPLE MYELOMA
     Dosage: 50 MG, 1 IN 1 D, ORAL
     Route: 047
     Dates: start: 20070510, end: 20070515
  2. PROTONIX [Concomitant]
  3. LIPITOR [Concomitant]
  4. HYDROCHLOROTHIAZIDE [Concomitant]
  5. ASPIRIN [Concomitant]
  6. LORAZEPAM [Concomitant]

REACTIONS (5)
  - CHEST PAIN [None]
  - DYSPNOEA [None]
  - MALAISE [None]
  - NAUSEA [None]
  - PANCREATITIS [None]
